FAERS Safety Report 8037721-8 (Version None)
Quarter: 2012Q1

REPORT INFORMATION
  Report Type: 
  Country: None (occurrence: None)
  Receive Date: 20120111
  Receipt Date: 20120102
  Transmission Date: 20120608
  Serious: Yes (Death)
  Sender: FDA-Public Use
  Company Number: US-BAYER-2012-002030

PATIENT
  Age: 19 Year
  Sex: Female

DRUGS (4)
  1. VENLAFAXINE [Suspect]
     Dosage: UNK
     Route: 048
  2. DIPHENHYDRAMINE HCL [Suspect]
     Dosage: UNK
     Route: 048
  3. MINOCYCLINE HCL [Suspect]
     Dosage: UNK
     Route: 048
  4. BUPROPION HYDROCHLORIDE [Suspect]
     Dosage: UNK
     Route: 048

REACTIONS (1)
  - TOXICITY TO VARIOUS AGENTS [None]
